FAERS Safety Report 8569352-5 (Version None)
Quarter: 2012Q3

REPORT INFORMATION
  Report Type: 
  Country: None (occurrence: None)
  Receive Date: 20120803
  Receipt Date: 20120426
  Transmission Date: 20120928
  Serious: No
  Sender: FDA-Public Use
  Company Number: US-ABBOTT-12P-163-0930064-00

PATIENT
  Sex: Female
  Weight: 63.106 kg

DRUGS (4)
  1. LANOXIN [Concomitant]
     Indication: HEART RATE IRREGULAR
  2. BENICAR [Suspect]
     Indication: HYPERTENSION
  3. NIASPAN [Suspect]
     Indication: BLOOD CHOLESTEROL
     Dates: start: 20120423
  4. SYNTHROID [Concomitant]
     Indication: PRODUCT USED FOR UNKNOWN INDICATION

REACTIONS (5)
  - NECK PAIN [None]
  - HEAD INJURY [None]
  - BACK PAIN [None]
  - VERTIGO [None]
  - FALL [None]
